FAERS Safety Report 6860946-1 (Version None)
Quarter: 2010Q3

REPORT INFORMATION
  Report Type: 
  Country: None (occurrence: None)
  Receive Date: 20100715
  Receipt Date: 20100701
  Transmission Date: 20110219
  Serious: Yes (Other)
  Sender: FDA-Public Use
  Company Number: AUR-APL-2010-01690

PATIENT
  Sex: Male

DRUGS (2)
  1. ONDANSETRON [Suspect]
  2. CHLORAMBUCIL [Suspect]

REACTIONS (1)
  - CARDIOMYOPATHY [None]
